FAERS Safety Report 5620946-6 (Version None)
Quarter: 2008Q1

REPORT INFORMATION
  Report Type: 
  Country: None (occurrence: None)
  Receive Date: 20080208
  Receipt Date: 20080128
  Transmission Date: 20080703
  Serious: Yes (Hospitalization)
  Sender: FDA-Public Use
  Company Number: FR-PFIZER INC-2008009075

PATIENT
  Sex: Female

DRUGS (10)
  1. SOLU-MEDROL [Suspect]
     Dates: start: 20071116, end: 20071117
  2. GLICLAZIDE [Suspect]
     Indication: DIABETES MELLITUS
     Route: 048
     Dates: start: 20071117, end: 20071117
  3. CEFTRIAXONE [Suspect]
     Indication: BRONCHITIS
     Dates: start: 20071116, end: 20071117
  4. FENSPIRIDE [Suspect]
     Route: 048
     Dates: start: 20071116, end: 20071117
  5. LISINOPRIL AND HYDROCHLOROTHIAZIDE [Concomitant]
     Route: 048
  6. ATENOLOL [Concomitant]
     Route: 048
  7. GLIBENCLAMIDE [Concomitant]
     Route: 048
  8. ESOMEPRAZOLE MAGNESIUM [Concomitant]
     Route: 048
  9. PARACETAMOL [Concomitant]
     Route: 048
  10. METFORMIN HCL [Concomitant]

REACTIONS (5)
  - FACE OEDEMA [None]
  - OEDEMA PERIPHERAL [None]
  - RASH MACULO-PAPULAR [None]
  - SYNCOPE VASOVAGAL [None]
  - VISION BLURRED [None]
